FAERS Safety Report 5389369-1 (Version None)
Quarter: 2007Q3

REPORT INFORMATION
  Report Type: 
  Country: None (occurrence: None)
  Receive Date: 20070717
  Receipt Date: 20070712
  Transmission Date: 20080115
  Serious: Yes (Death, Hospitalization)
  Sender: FDA-Public Use
  Company Number: PHEH2007US09228

PATIENT
  Age: 82 Year
  Sex: Female
  Weight: 67.12 kg

DRUGS (7)
  1. GLEEVEC [Suspect]
     Indication: GASTROINTESTINAL STROMAL TUMOUR
     Dosage: 200 MG, QD
     Route: 048
     Dates: start: 20070613, end: 20070621
  2. COUMADIN [Concomitant]
     Indication: ATRIAL FIBRILLATION
     Dosage: 1 MG, QD
     Route: 048
  3. AMBIEN [Concomitant]
     Indication: INSOMNIA
     Dosage: 5 MG, QD
     Route: 048
  4. BENICAR [Concomitant]
     Indication: CARDIAC DISORDER
     Dosage: 40 MG, QD
     Route: 048
  5. CARDIAZEM [Concomitant]
     Indication: CARDIAC DISORDER
     Dosage: 60 MG, Q6H
     Route: 048
  6. METOPROLOL SUCCINATE [Concomitant]
     Indication: CARDIAC DISORDER
     Dosage: 25 MG, BID
     Route: 048
  7. PROTONIX [Concomitant]
     Indication: GASTROINTESTINAL DISORDER
     Dosage: 40 MG, QD
     Route: 048

REACTIONS (14)
  - ABDOMINAL PAIN [None]
  - ATRIAL FIBRILLATION [None]
  - BLOOD PRESSURE SYSTOLIC DECREASED [None]
  - COMPUTERISED TOMOGRAM ABNORMAL [None]
  - DYSPNOEA [None]
  - ELECTROCARDIOGRAM ABNORMAL [None]
  - GASTROINTESTINAL NECROSIS [None]
  - HEART RATE INCREASED [None]
  - HEART RATE IRREGULAR [None]
  - INTESTINAL ISCHAEMIA [None]
  - MYOCARDIAL INFARCTION [None]
  - RECTAL HAEMORRHAGE [None]
  - RESPIRATORY RATE INCREASED [None]
  - THROMBOSIS [None]
